FAERS Safety Report 19622939 (Version 1)
Quarter: 2021Q3

REPORT INFORMATION
  Report Type: Spontaneous
  Country: US (occurrence: US)
  Receive Date: 20210728
  Receipt Date: 20210728
  Transmission Date: 20211014
  Serious: No
  Sender: FDA-Public Use
  Company Number: US-GILEAD-2021-0542158

PATIENT
  Sex: Male

DRUGS (5)
  1. EPCLUSA [Suspect]
     Active Substance: SOFOSBUVIR\VELPATASVIR
     Indication: HEPATITIS C
     Dosage: 1 DOSAGE FORM
     Route: 065
  2. OXYCODONE [Concomitant]
     Active Substance: OXYCODONE
  3. CALCIUM C [CALCIUM CARBONATE] [Concomitant]
  4. METHOCARBAMOL. [Concomitant]
     Active Substance: METHOCARBAMOL
  5. BACLOFEN. [Concomitant]
     Active Substance: BACLOFEN

REACTIONS (1)
  - Product dose omission issue [Unknown]
